FAERS Safety Report 10861984 (Version 1)
Quarter: 2015Q1

REPORT INFORMATION
  Report Type: Spontaneous
  Country: US (occurrence: US)
  Receive Date: 20150224
  Receipt Date: 20150224
  Transmission Date: 20150721
  Serious: No
  Sender: FDA-Public Use
  Company Number: US-BRISTOL-MYERS SQUIBB COMPANY-BMS-2015-009891

PATIENT
  Sex: Female

DRUGS (1)
  1. ABILIFY [Suspect]
     Active Substance: ARIPIPRAZOLE
     Indication: CRANIOCEREBRAL INJURY
     Dosage: 10 MG, UNK
     Route: 048
     Dates: start: 2014

REACTIONS (3)
  - Insomnia [Unknown]
  - Flat affect [Unknown]
  - Off label use [Unknown]
